FAERS Safety Report 6065656-9 (Version None)
Quarter: 2009Q1

REPORT INFORMATION
  Report Type: 
  Country: None (occurrence: None)
  Receive Date: 20090130
  Receipt Date: 20090121
  Transmission Date: 20090719
  Serious: Yes (Hospitalization)
  Sender: FDA-Public Use
  Company Number: 2009S1001597

PATIENT
  Age: 56 Year
  Sex: Female
  Weight: 100 kg

DRUGS (4)
  1. MOXONIDINE (MOXONIDINE) [Suspect]
     Indication: HYPERTENSION
     Dosage: 0.3 MG; DAILY; ORAL
     Route: 048
  2. NEBIVOLOL HCL [Suspect]
     Indication: HYPERTENSION
     Dosage: 5 MG; DAILY; ORAL
     Route: 048
     Dates: start: 20080718
  3. EXFORGE /01634301/ [Concomitant]
  4. RESLEZ [Concomitant]

REACTIONS (1)
  - HYPERTENSION [None]
